FAERS Safety Report 6027159-7 (Version None)
Quarter: 2008Q4

REPORT INFORMATION
  Report Type: 
  Country: None (occurrence: None)
  Receive Date: 20081231
  Receipt Date: 20081231
  Transmission Date: 20090506
  Serious: Yes (Other)
  Sender: FDA-Public Use
  Company Number: None

PATIENT
  Age: 70 Year
  Sex: Male
  Weight: 95.2554 kg

DRUGS (4)
  1. OSMOPREP [Suspect]
     Indication: BOWEL PREPARATION
     Dosage: 4 TABLETS 15 MINUTES PO
     Route: 048
     Dates: start: 20080902, end: 20080902
  2. OSMOPREP [Suspect]
     Indication: COLONOSCOPY
     Dosage: 4 TABLETS 15 MINUTES PO
     Route: 048
     Dates: start: 20080902, end: 20080902
  3. OSMOPREP [Suspect]
     Indication: BOWEL PREPARATION
     Dosage: 4 TABLETS 15 MINUTES PO
     Route: 048
     Dates: start: 20080903, end: 20080903
  4. OSMOPREP [Suspect]
     Indication: COLONOSCOPY
     Dosage: 4 TABLETS 15 MINUTES PO
     Route: 048
     Dates: start: 20080903, end: 20080903

REACTIONS (1)
  - RENAL FAILURE CHRONIC [None]
